FAERS Safety Report 13896773 (Version 3)
Quarter: 2017Q4

REPORT INFORMATION
  Report Type: Report from Study
  Country: US (occurrence: US)
  Receive Date: 20170823
  Receipt Date: 20171005
  Transmission Date: 20180320
  Serious: Yes (Death, Other)
  Sender: FDA-Public Use
  Company Number: US-009507513-1708USA008357

PATIENT
  Sex: Female

DRUGS (3)
  1. XARELTO [Concomitant]
     Active Substance: RIVAROXABAN
     Dosage: UNK
  2. ATENOLOL. [Concomitant]
     Active Substance: ATENOLOL
     Dosage: UNK
  3. KEYTRUDA [Suspect]
     Active Substance: PEMBROLIZUMAB
     Indication: NON-SMALL CELL LUNG CANCER
     Dosage: UNK, EVERY 3 WEEKS, 5 CYCLES
     Route: 042
     Dates: start: 201701, end: 20170420

REACTIONS (4)
  - Malignant neoplasm progression [Fatal]
  - Thrombosis [Unknown]
  - Asthenia [Unknown]
  - Pneumonia [Fatal]

NARRATIVE: CASE EVENT DATE: 2017
